FAERS Safety Report 8369895-3 (Version None)
Quarter: 2012Q1

REPORT INFORMATION
  Report Type: 
  Country: None (occurrence: None)
  Receive Date: 20120323
  Receipt Date: 20111121
  Transmission Date: 20120608
  Serious: Yes (Hospitalization)
  Sender: FDA-Public Use
  Company Number: 163-21880-11113080

PATIENT
  Age: 56 Year
  Sex: Male

DRUGS (2)
  1. REVLIMID [Suspect]
     Indication: MULTIPLE MYELOMA
     Dosage: 10 MG, X 28 DAYS, PO; 10 MG, X 28 DAYS, PO
     Route: 048
     Dates: start: 20101001
  2. REVLIMID [Suspect]
     Indication: MULTIPLE MYELOMA
     Dosage: 10 MG, X 28 DAYS, PO; 10 MG, X 28 DAYS, PO
     Route: 048
     Dates: start: 20111101

REACTIONS (2)
  - SINUSITIS [None]
  - SEPSIS [None]
